FAERS Safety Report 8424000 (Version 3)
Quarter: 2012Q4

REPORT INFORMATION
  Report Type: 
  Country: US (occurrence: US)
  Receive Date: 20120224
  Receipt Date: 20120905
  Transmission Date: 20130627
  Serious: Yes (Hospitalization)
  Sender: FDA-Public Use
  Company Number: US-BAYER-2012-016989

PATIENT
  Age: 20 Year
  Sex: Female
  Weight: 90.7 kg

DRUGS (8)
  1. YAZ [Suspect]
     Indication: POLYCYSTIC OVARIES
  2. GIANVI [Suspect]
     Indication: CONTRACEPTION
     Dosage: UNK
     Dates: start: 20100731, end: 20110117
  3. GIANVI [Suspect]
     Indication: CYST
  4. ALBUTEROL [Concomitant]
     Indication: ASTHMA
  5. LORCET [Concomitant]
     Indication: PAIN
     Dosage: every 4-6 hours
  6. DOCUSATE [Concomitant]
     Dosage: 100 mg, UNK
  7. MIRALAX [Concomitant]
     Dosage: every day,
  8. HYDROCODONE/ACETAMINOPHEN [Concomitant]

REACTIONS (5)
  - Pulmonary embolism [None]
  - Deep vein thrombosis [Recovered/Resolved]
  - Pain [None]
  - Anxiety [None]
  - Injury [None]
